FAERS Safety Report 9913324 (Version 1)
Quarter: 2014Q1

REPORT INFORMATION
  Report Type: Spontaneous
  Country: US (occurrence: None)
  Receive Date: 20140219
  Receipt Date: 20140219
  Transmission Date: 20141002
  Serious: Yes (Other)
  Sender: FDA-Public Use
  Company Number: None

PATIENT
  Age: 72 Year
  Sex: Female

DRUGS (1)
  1. ARMIDEX, 1 MG, ASTRAZENECA [Suspect]
     Route: 048
     Dates: start: 20131202, end: 20140217

REACTIONS (1)
  - Depression [None]
